FAERS Safety Report 5477455-7 (Version None)
Quarter: 2007Q4

REPORT INFORMATION
  Report Type: 
  Country: None (occurrence: None)
  Receive Date: 20071004
  Receipt Date: 20070823
  Transmission Date: 20080405
  Serious: Yes (Death, Other)
  Sender: FDA-Public Use
  Company Number: US-ABBOTT-07P-163-0369911-00

PATIENT
  Age: 24 Year
  Sex: Male

DRUGS (2)
  1. VICODIN [Suspect]
     Indication: BLADDER DISORDER
     Dates: start: 19990101
  2. UNSPECIFIED PAIN MEDICATIONS [Concomitant]
     Indication: BLADDER DISORDER

REACTIONS (14)
  - BLADDER DISORDER [None]
  - CONDUCT DISORDER [None]
  - CRYING [None]
  - HEPATIC FAILURE [None]
  - JUDGEMENT IMPAIRED [None]
  - MULTIPLE DRUG OVERDOSE [None]
  - PAIN [None]
  - PERIPHERAL COLDNESS [None]
  - RENAL FAILURE [None]
  - RESPIRATORY ARREST [None]
  - SCREAMING [None]
  - STARING [None]
  - TREMOR [None]
  - UNRESPONSIVE TO STIMULI [None]
